FAERS Safety Report 7286213-2 (Version None)
Quarter: 2011Q1

REPORT INFORMATION
  Report Type: 
  Country: None (occurrence: None)
  Receive Date: 20110210
  Receipt Date: 20110201
  Transmission Date: 20110831
  Serious: Yes (Other)
  Sender: FDA-Public Use
  Company Number: PHHY2011BE08836

PATIENT
  Sex: Male

DRUGS (1)
  1. SANDIMMUNE [Suspect]
     Indication: HEART TRANSPLANT
     Dosage: 150 MG, BID
     Route: 048
     Dates: start: 19910821, end: 20100101

REACTIONS (3)
  - COMPLICATIONS OF TRANSPLANTED HEART [None]
  - MULTIPLE MYELOMA [None]
  - NEPHROPATHY TOXIC [None]
